FAERS Safety Report 4643327-0 (Version None)
Quarter: 2005Q2

REPORT INFORMATION
  Report Type: 
  Country: None (occurrence: None)
  Receive Date: 20050422
  Receipt Date: 20050217
  Transmission Date: 20051028
  Serious: Yes (Life-Threatening, Other)
  Sender: FDA-Public Use
  Company Number: 2005036710

PATIENT

DRUGS (1)
  1. CELEBREX [Suspect]
     Indication: ARTHRALGIA
     Dates: start: 19990311

REACTIONS (5)
  - ANEURYSM [None]
  - CARDIAC ARREST [None]
  - IATROGENIC INJURY [None]
  - MYOCARDIAL INFARCTION [None]
  - THERAPEUTIC EMBOLISATION [None]
